FAERS Safety Report 10184117 (Version 1)
Quarter: 2014Q2

REPORT INFORMATION
  Report Type: Spontaneous
  Country: US (occurrence: US)
  Receive Date: 20140520
  Receipt Date: 20140520
  Transmission Date: 20141212
  Serious: No
  Sender: FDA-Public Use
  Company Number: US-ASTRAZENECA-2013SE47088

PATIENT
  Sex: Male
  Weight: 68.9 kg

DRUGS (1)
  1. BUDESONIDE [Suspect]
     Indication: DIARRHOEA
     Route: 048
     Dates: start: 20130517, end: 20130519

REACTIONS (3)
  - Diarrhoea [Unknown]
  - Off label use [Unknown]
  - Drug dose omission [Unknown]
